FAERS Safety Report 4781609-2 (Version None)
Quarter: 2005Q3

REPORT INFORMATION
  Report Type: 
  Country: None (occurrence: None)
  Receive Date: 20050927
  Receipt Date: 20050915
  Transmission Date: 20060218
  Serious: Yes (Other)
  Sender: FDA-Public Use
  Company Number: 2005129698

PATIENT
  Sex: Female

DRUGS (3)
  1. ATARAX [Suspect]
     Indication: ANXIETY
     Dosage: 25 MG (1 IN 1 D)
  2. PROPRANOLOL [Suspect]
     Indication: MIGRAINE
     Dosage: 80 MG (40 MG, 2 IN 1 D)
  3. PROPOFAN (CAFFEINE, CARBASALATE CALCIUM, CHLORPHENAMINE MALEATE, DEXTR [Concomitant]

REACTIONS (2)
  - OCULOGYRATION [None]
  - SINUSITIS [None]
